FAERS Safety Report 5630221-1 (Version None)
Quarter: 2008Q1

REPORT INFORMATION
  Report Type: 
  Country: None (occurrence: None)
  Receive Date: 20080219
  Receipt Date: 20080208
  Transmission Date: 20080703
  Serious: Yes (Hospitalization)
  Sender: FDA-Public Use
  Company Number: DE-ELI_LILLY_AND_COMPANY-DE200802001977

PATIENT
  Age: 41 Year
  Sex: Female

DRUGS (8)
  1. OLANZAPINE [Suspect]
     Indication: DEPRESSION
     Dosage: 5 MG, UNK
     Route: 048
     Dates: start: 20070303, end: 20070330
  2. TAVOR [Concomitant]
     Dosage: 1 MG, UNK
     Route: 048
     Dates: start: 20070303, end: 20070319
  3. TAVOR [Concomitant]
     Dosage: 2 MG, UNK
     Route: 048
     Dates: start: 20070320, end: 20070415
  4. TAVOR [Concomitant]
     Dosage: 1.25 MG, UNK
     Route: 048
     Dates: start: 20070416, end: 20070429
  5. CIPRALEX [Concomitant]
     Dosage: 10 MG, UNK
     Route: 048
     Dates: start: 20070303, end: 20070319
  6. CIPRALEX [Concomitant]
     Dosage: 20 MG, UNK
     Route: 048
     Dates: start: 20070325, end: 20070425
  7. CIPRALEX [Concomitant]
     Dosage: 25 MG, UNK
     Route: 048
     Dates: start: 20070426, end: 20070504
  8. CIPRALEX [Concomitant]
     Dosage: 30 MG, UNK
     Route: 048
     Dates: start: 20070525, end: 20070531

REACTIONS (4)
  - ALANINE AMINOTRANSFERASE INCREASED [None]
  - ASPARTATE AMINOTRANSFERASE INCREASED [None]
  - BLOOD ALKALINE PHOSPHATASE INCREASED [None]
  - HEPATIC ENZYME INCREASED [None]
